FAERS Safety Report 22613126 (Version 4)
Quarter: 2023Q2

REPORT INFORMATION
  Report Type: Spontaneous
  Country: US (occurrence: US)
  Receive Date: 20230618
  Receipt Date: 20230627
  Transmission Date: 20230722
  Serious: Yes (Death, Hospitalization)
  Sender: FDA-Public Use
  Company Number: US-BIOGEN-2023BI01211005

PATIENT
  Sex: Male

DRUGS (2)
  1. TYSABRI [Suspect]
     Active Substance: NATALIZUMAB
     Indication: Multiple sclerosis
     Dosage: INFUSED OVER 1 HOUR
     Route: 050
     Dates: start: 20170421, end: 20230508
  2. TYSABRI [Suspect]
     Active Substance: NATALIZUMAB
     Route: 050

REACTIONS (1)
  - Pneumonia aspiration [Fatal]
